FAERS Safety Report 12635354 (Version 3)
Quarter: 2017Q2

REPORT INFORMATION
  Report Type: Report from Study
  Country: BR (occurrence: BR)
  Receive Date: 20160808
  Receipt Date: 20170403
  Transmission Date: 20170830
  Serious: Yes (Hospitalization, Other)
  Sender: FDA-Public Use
  Company Number: BR-TAKEDA-2016TUS011798

PATIENT
  Age: 36 Year
  Sex: Female
  Weight: 69 kg

DRUGS (1)
  1. VEDOLIZUMAB [Suspect]
     Active Substance: VEDOLIZUMAB
     Indication: CROHN^S DISEASE
     Dosage: 300 MG, UNK
     Route: 042
     Dates: start: 20160623

REACTIONS (14)
  - Trigeminal neuralgia [Not Recovered/Not Resolved]
  - Abscess [Unknown]
  - Drug dose omission [Unknown]
  - Off label use [Unknown]
  - Crohn^s disease [Unknown]
  - Neck pain [Not Recovered/Not Resolved]
  - Nodule [Not Recovered/Not Resolved]
  - Weight increased [Unknown]
  - Pyrexia [Recovered/Resolved]
  - Influenza like illness [Unknown]
  - Pain [Recovered/Resolved]
  - Malaise [Recovered/Resolved]
  - Surgery [Unknown]
  - Arthralgia [Unknown]

NARRATIVE: CASE EVENT DATE: 201606
